FAERS Safety Report 6127271-8 (Version None)
Quarter: 2009Q1

REPORT INFORMATION
  Report Type: 
  Country: None (occurrence: None)
  Receive Date: 20090319
  Receipt Date: 20090305
  Transmission Date: 20090719
  Serious: Yes (Hospitalization)
  Sender: FDA-Public Use
  Company Number: 02100-JPN-06-0545

PATIENT
  Age: 72 Year
  Sex: Female

DRUGS (11)
  1. PLAVIX [Suspect]
     Indication: CEREBRAL INFARCTION
     Dosage: 75 MG ORAL
     Route: 048
     Dates: start: 20060519, end: 20061114
  2. ASPIRIN [Concomitant]
  3. GLIMEPIRIDE (GLIMEPIRIDE) UNKNOWN [Concomitant]
  4. AMLODIPINE [Concomitant]
  5. BERAPROST SODIUM (BERAPROST SODIUM) UNKNOWN [Concomitant]
  6. METFORMIN HCL (METFORMIN HCL) UNKNOWN [Concomitant]
  7. ESCITALOPRAM OXALATE (ESCITALOPRAM OXALATE) UNKNOWN [Concomitant]
  8. MELOXICAM [Concomitant]
  9. PRAVASTATIN SODIUM (PRAVASTATIN SODIUM) UNKNOWN [Concomitant]
  10. ARTEMISIA ASIATICA 95% ETHANOL EXTRACT (ARTEMISIA ASATICA 95% ETHANOL [Concomitant]
  11. BENFOTIAMINE/CYANOCOBALAMINE/PYRIDOXINE UNKNOWN [Concomitant]

REACTIONS (2)
  - DIZZINESS [None]
  - GASTRODUODENAL ULCER [None]
